FAERS Safety Report 9190095 (Version 2)
Quarter: 2013Q2

REPORT INFORMATION
  Report Type: Spontaneous
  Country: US (occurrence: None)
  Receive Date: 20120703
  Receipt Date: 20121031
  Transmission Date: 20140414
  Serious: No
  Sender: FDA-Public Use
  Company Number: PHEH2012US010000

PATIENT
  Age: 58 Year
  Sex: Female
  Weight: 95.7 kg

DRUGS (8)
  1. GILENYA [Suspect]
     Route: 048
     Dates: start: 201110
  2. LOSARTAN [Concomitant]
  3. GABAPENTIN [Concomitant]
  4. VENLAFAXINE [Concomitant]
  5. TAMSULOSIN [Concomitant]
  6. LOSARTAN POTASSIUM [Concomitant]
  7. ASPIRIN [Concomitant]
  8. VITAMIN D (ERGOCALCIFEROL) [Concomitant]

REACTIONS (6)
  - Alopecia [None]
  - Hair texture abnormal [None]
  - Burning sensation [None]
  - Hypoaesthesia [None]
  - Musculoskeletal stiffness [None]
  - Vision blurred [None]
